FAERS Safety Report 5011600-2 (Version None)
Quarter: 2006Q2

REPORT INFORMATION
  Report Type: 
  Country: None (occurrence: None)
  Receive Date: 20060404
  Receipt Date: 20051104
  Transmission Date: 20061013
  Serious: No
  Sender: FDA-Public Use
  Company Number: USA0511112781

PATIENT
  Age: 31 Year
  Sex: Female

DRUGS (5)
  1. CYMBALTA [Suspect]
     Indication: FACIAL PAIN
     Dosage: 60 MG, DAILY (1/D)
     Dates: start: 20050901
  2. VICODIN [Concomitant]
  3. IMITREX [Concomitant]
  4. GABAPENTIN [Concomitant]
  5. CARBAMAZEPINE [Concomitant]

REACTIONS (1)
  - DRUG SCREEN POSITIVE [None]
